FAERS Safety Report 4701925-X (Version None)
Quarter: 2005Q2

REPORT INFORMATION
  Report Type: 
  Country: None (occurrence: None)
  Receive Date: 20050627
  Receipt Date: 20050613
  Transmission Date: 20051028
  Serious: Yes (Other)
  Sender: FDA-Public Use
  Company Number: 2005087327

PATIENT
  Age: 16 Year
  Sex: Male
  Weight: 72.1219 kg

DRUGS (3)
  1. BENADRYL [Suspect]
     Indication: SEASONAL ALLERGY
     Dosage: 2 TABLETS, THEN 1 TABLET WITHIN 3 HOURS, ORAL
     Route: 048
     Dates: start: 20050609, end: 20050610
  2. ETHANOL (ETHANOL) [Suspect]
     Dosage: UNSPECIFIED AMOUNT, ORAL
     Route: 048
  3. IBUPROFEN [Concomitant]

REACTIONS (6)
  - BLOOD ALCOHOL ABNORMAL [None]
  - DEHYDRATION [None]
  - DRUG INEFFECTIVE [None]
  - INCORRECT DOSE ADMINISTERED [None]
  - INSOMNIA [None]
  - LOSS OF CONSCIOUSNESS [None]
